FAERS Safety Report 6596500-9 (Version None)
Quarter: 2010Q1

REPORT INFORMATION
  Report Type: 
  Country: None (occurrence: None)
  Receive Date: 20100223
  Receipt Date: 20100217
  Transmission Date: 20100710
  Serious: Yes (Death)
  Sender: FDA-Public Use
  Company Number: JP-ROCHE-686573

PATIENT
  Sex: Male
  Weight: 48.3 kg

DRUGS (14)
  1. TOCILIZUMAB [Suspect]
     Indication: RHEUMATOID ARTHRITIS
     Dosage: DOSE REGIMEN; 01
     Route: 041
     Dates: start: 20081027, end: 20081027
  2. TOCILIZUMAB [Suspect]
     Dosage: DOSE REGIMEN: 02
     Route: 041
     Dates: start: 20081127, end: 20081127
  3. TOCILIZUMAB [Suspect]
     Route: 041
     Dates: start: 20081229, end: 20081229
  4. TOCILIZUMAB [Suspect]
     Dosage: DOSE REGIMEN :03
     Route: 041
     Dates: start: 20090128, end: 20090128
  5. TOCILIZUMAB [Suspect]
     Dosage: DOSE REGIMEN: 04
     Route: 041
     Dates: start: 20090226, end: 20090226
  6. TOCILIZUMAB [Suspect]
     Dosage: DOSE REGIMEN: 05
     Route: 041
     Dates: start: 20090326, end: 20090326
  7. TOCILIZUMAB [Suspect]
     Dosage: DOSE REGIMEN: 07
     Route: 041
     Dates: start: 20090423
  8. PREDNISOLONE [Concomitant]
     Dosage: FORM: PERORAL AGENT.
     Route: 048
  9. LOXONIN [Concomitant]
     Dosage: FORM: PERORAL AGENT.
     Route: 048
  10. SOLON [Concomitant]
     Dosage: DOSE FORM: MINUTE GRAIN
     Route: 048
  11. HARNAL [Concomitant]
     Route: 048
  12. OLMETEC [Concomitant]
     Route: 048
  13. ALFAROL [Concomitant]
     Route: 048
     Dates: start: 20090128
  14. CONIEL [Concomitant]
     Route: 048
     Dates: start: 20090227

REACTIONS (2)
  - LUNG NEOPLASM MALIGNANT [None]
  - NASOPHARYNGITIS [None]
